FAERS Safety Report 15883958 (Version 1)
Quarter: 2019Q1

REPORT INFORMATION
  Report Type: Spontaneous
  Country: US (occurrence: US)
  Receive Date: 20190129
  Receipt Date: 20190129
  Transmission Date: 20190417
  Serious: No
  Sender: FDA-Public Use
  Company Number: None

PATIENT
  Age: 48 Year
  Sex: Female
  Weight: 48.6 kg

DRUGS (19)
  1. EPINEPHRINE INJECTOR [Suspect]
     Active Substance: EPINEPHRINE
     Indication: ANAPHYLACTIC REACTION
     Dosage: ?          QUANTITY:1 INJECTION(S);?
     Route: 030
  2. METOPROLOL. [Concomitant]
     Active Substance: METOPROLOL
  3. BENTYL [Concomitant]
     Active Substance: DICYCLOMINE HYDROCHLORIDE
  4. CELEXA [Concomitant]
     Active Substance: CITALOPRAM HYDROBROMIDE
  5. ATIVAN [Concomitant]
     Active Substance: LORAZEPAM
  6. HYDROXYZINE [Concomitant]
     Active Substance: HYDROXYZINE HYDROCHLORIDE
  7. LEVOXYL [Concomitant]
     Active Substance: LEVOTHYROXINE SODIUM
  8. VENTOLIN [Concomitant]
     Active Substance: ALBUTEROL SULFATE
  9. COLESTIPOL [Concomitant]
     Active Substance: COLESTIPOL
  10. TYLENOL [Concomitant]
     Active Substance: ACETAMINOPHEN
  11. CYMBALTA [Concomitant]
     Active Substance: DULOXETINE HYDROCHLORIDE
  12. CLARITIN [Concomitant]
     Active Substance: LORATADINE
  13. PROTISIM [Concomitant]
  14. PROTONIX [Concomitant]
     Active Substance: PANTOPRAZOLE SODIUM
  15. CREON [Concomitant]
     Active Substance: PANCRELIPASE AMYLASE\PANCRELIPASE LIPASE\PANCRELIPASE PROTEASE
  16. PRAVASTATIN. [Concomitant]
     Active Substance: PRAVASTATIN
  17. SYMBICORT [Concomitant]
     Active Substance: BUDESONIDE\FORMOTEROL FUMARATE DIHYDRATE
  18. FLONASE [Concomitant]
     Active Substance: FLUTICASONE PROPIONATE
  19. POTASSIUM [Concomitant]
     Active Substance: POTASSIUM

REACTIONS (5)
  - Vocal cord inflammation [None]
  - Stridor [None]
  - Pharyngeal oedema [None]
  - Product substitution issue [None]
  - Pyrexia [None]

NARRATIVE: CASE EVENT DATE: 20181213
